FAERS Safety Report 17338744 (Version 2)
Quarter: 2020Q1

REPORT INFORMATION
  Report Type: Spontaneous
  Country: JP (occurrence: JP)
  Receive Date: 20200129
  Receipt Date: 20200211
  Transmission Date: 20200409
  Serious: Yes (Death)
  Sender: FDA-Public Use
  Company Number: JP-AMGEN-JPNSP2020013497

PATIENT
  Age: 70 Year
  Sex: Female
  Weight: 62.2 kg

DRUGS (7)
  1. EPOGIN [Concomitant]
     Active Substance: ERYTHROPOIETIN
     Dosage: 9000 DOSAGE FORM, QWK
     Route: 042
     Dates: start: 20190827, end: 20191019
  2. P-TOL [SUCROFERRIC OXYHYDROXIDE] [Concomitant]
     Dosage: 500 MILLIGRAM, QD
     Route: 048
     Dates: end: 20191117
  3. CARVEDILOL. [Concomitant]
     Active Substance: CARVEDILOL
     Indication: CARDIAC FAILURE
     Dosage: UNK
     Route: 065
     Dates: start: 20190204, end: 20191117
  4. PARSABIV [Suspect]
     Active Substance: ETELCALCETIDE HYDROCHLORIDE
     Indication: HYPERPARATHYROIDISM SECONDARY
     Dosage: UNK
     Route: 010
  5. MAXACALCITOL [Concomitant]
     Active Substance: MAXACALCITOL
     Dosage: 2.5 MICROGRAM, 3 TIMES/WK
     Route: 010
     Dates: start: 20190402, end: 20191019
  6. EPOGIN [Concomitant]
     Active Substance: ERYTHROPOIETIN
     Dosage: 6000 DOSAGE FORM, QWK
     Route: 065
     Dates: start: 20190427, end: 20190824
  7. NESP [Concomitant]
     Active Substance: DARBEPOETIN ALFA
     Dosage: 40 MICROGRAM, QWK
     Route: 065
     Dates: start: 20191026, end: 20191123

REACTIONS (1)
  - Decreased appetite [Fatal]

NARRATIVE: CASE EVENT DATE: 20190928
